FAERS Safety Report 11148010 (Version 2)
Quarter: 2015Q3

REPORT INFORMATION
  Report Type: Report from Study
  Country: DE (occurrence: DE)
  Receive Date: 20150529
  Receipt Date: 20150708
  Transmission Date: 20151125
  Serious: Yes (Other)
  Sender: FDA-Public Use
  Company Number: DE-ROCHE-1566685

PATIENT
  Age: 86 Year
  Sex: Female
  Weight: 62 kg

DRUGS (3)
  1. RANIBIZUMAB [Suspect]
     Active Substance: RANIBIZUMAB
     Route: 050
     Dates: start: 20140325
  2. RANIBIZUMAB [Suspect]
     Active Substance: RANIBIZUMAB
     Indication: NEOVASCULAR AGE-RELATED MACULAR DEGENERATION
     Dosage: 0.05 ML; LAST RANIBIZUMAB INJECTION PRIOR TO THE EVENT WAS ON 11 FEB 2014.
     Route: 050
     Dates: start: 20131217
  3. LATANO PLUS T [Concomitant]

REACTIONS (3)
  - Vitreous detachment [Recovered/Resolved]
  - Vitreous haemorrhage [Recovered/Resolved]
  - Glaucoma [Unknown]

NARRATIVE: CASE EVENT DATE: 20140217
